FAERS Safety Report 22210031 (Version 1)
Quarter: 2023Q2

REPORT INFORMATION
  Report Type: Report from Study
  Country: CA (occurrence: CA)
  Receive Date: 20230414
  Receipt Date: 20230414
  Transmission Date: 20230722
  Serious: Yes (Other)
  Sender: FDA-Public Use
  Company Number: CA-JNJFOC-20230413625

PATIENT
  Age: 79 Year
  Sex: Female

DRUGS (10)
  1. REMICADE [Suspect]
     Active Substance: INFLIXIMAB
     Indication: Crohn^s disease
     Route: 042
     Dates: start: 20150909, end: 20230216
  2. CIPROFLOXACIN [Suspect]
     Active Substance: CIPROFLOXACIN
     Indication: Muscle spasms
     Route: 065
     Dates: start: 20230322, end: 20230401
  3. CIPROFLOXACIN [Suspect]
     Active Substance: CIPROFLOXACIN
     Indication: Diarrhoea
  4. CIPROFLOXACIN [Suspect]
     Active Substance: CIPROFLOXACIN
     Indication: Constipation
  5. FLAGYL [Suspect]
     Active Substance: METRONIDAZOLE\METRONIDAZOLE HYDROCHLORIDE
     Indication: Muscle spasms
     Route: 065
     Dates: start: 20230322, end: 20230401
  6. FLAGYL [Suspect]
     Active Substance: METRONIDAZOLE\METRONIDAZOLE HYDROCHLORIDE
     Indication: Diarrhoea
  7. FLAGYL [Suspect]
     Active Substance: METRONIDAZOLE\METRONIDAZOLE HYDROCHLORIDE
     Indication: Constipation
  8. PREDNISONE [Suspect]
     Active Substance: PREDNISONE
     Indication: Muscle spasms
     Route: 065
     Dates: end: 20230401
  9. PREDNISONE [Suspect]
     Active Substance: PREDNISONE
     Indication: Diarrhoea
  10. PREDNISONE [Suspect]
     Active Substance: PREDNISONE
     Indication: Constipation

REACTIONS (3)
  - Diverticulitis [Recovered/Resolved]
  - Oral candidiasis [Recovering/Resolving]
  - Muscle spasms [Recovered/Resolved]

NARRATIVE: CASE EVENT DATE: 20230315
